FAERS Safety Report 7647739-2 (Version None)
Quarter: 2011Q3

REPORT INFORMATION
  Report Type: 
  Country: None (occurrence: None)
  Receive Date: 20110801
  Receipt Date: 20110801
  Transmission Date: 20111222
  Serious: Yes (Other)
  Sender: FDA-Public Use
  Company Number: None

PATIENT
  Age: 61 Year
  Sex: Female
  Weight: 83.914 kg

DRUGS (1)
  1. CYMBALTA [Suspect]
     Indication: DRUG THERAPY CHANGED
     Dosage: 1 CAPSULE
     Route: 048
     Dates: start: 20110620, end: 20110717

REACTIONS (6)
  - DIZZINESS [None]
  - AMNESIA [None]
  - DISORIENTATION [None]
  - LOSS OF CONSCIOUSNESS [None]
  - ASTHENIA [None]
  - TREMOR [None]
